FAERS Safety Report 10043082 (Version 1)
Quarter: 2014Q1

REPORT INFORMATION
  Report Type: Spontaneous
  Country: US (occurrence: US)
  Receive Date: 20140328
  Receipt Date: 20140328
  Transmission Date: 20141002
  Serious: No
  Sender: FDA-Public Use
  Company Number: US-BIOGENIDEC-2014BI026312

PATIENT
  Sex: Female

DRUGS (11)
  1. AVONEX [Suspect]
     Indication: MULTIPLE SCLEROSIS
     Route: 030
     Dates: start: 19990701
  2. AVONEX [Suspect]
     Indication: MULTIPLE SCLEROSIS
     Route: 030
  3. PROVIGIL [Concomitant]
  4. COPAXONE [Concomitant]
     Route: 058
  5. ESTRATEST [Concomitant]
     Route: 048
  6. PROMETRIUM [Concomitant]
     Route: 048
  7. VITAMIN B 12 [Concomitant]
     Dosage: DOSE UNIT:1000
     Route: 048
  8. ASPIRIN [Concomitant]
     Route: 048
  9. ATIVAN [Concomitant]
     Route: 048
  10. NEURONTIN [Concomitant]
  11. DICLOFENAC [Concomitant]

REACTIONS (3)
  - Ill-defined disorder [Unknown]
  - Thyroid cyst [Unknown]
  - Ovarian cyst [Unknown]
